FAERS Safety Report 18680717 (Version 1)
Quarter: 2020Q4

REPORT INFORMATION
  Report Type: Spontaneous
  Country: CH (occurrence: CH)
  Receive Date: 20201229
  Receipt Date: 20201229
  Transmission Date: 20210114
  Serious: Yes (Hospitalization)
  Sender: FDA-Public Use
  Company Number: CH-PFIZER INC-2020510241

PATIENT
  Age: 82 Year
  Sex: Female
  Weight: 61.8 kg

DRUGS (4)
  1. LITHIOFOR [Concomitant]
     Active Substance: LITHIUM SULFATE
     Dosage: UNK
  2. STILNOX [Concomitant]
     Active Substance: ZOLPIDEM TARTRATE
     Dosage: UNK
  3. DALACIN C [Suspect]
     Active Substance: CLINDAMYCIN
     Indication: DENTAL CARE
     Dosage: UNK, 2X/DAY
     Route: 048
     Dates: end: 2020
  4. ELTROXIN [Concomitant]
     Active Substance: LEVOTHYROXINE
     Dosage: UNK

REACTIONS (1)
  - Drug eruption [Recovered/Resolved]

NARRATIVE: CASE EVENT DATE: 20201106
